FAERS Safety Report 15939263 (Version 1)
Quarter: 2019Q1

REPORT INFORMATION
  Report Type: Spontaneous
  Country: US (occurrence: US)
  Receive Date: 20190208
  Receipt Date: 20190208
  Transmission Date: 20190417
  Serious: No
  Sender: FDA-Public Use
  Company Number: US-009507513-1902USA002407

PATIENT
  Sex: Male
  Weight: 114.29 kg

DRUGS (1)
  1. TICE BCG [Suspect]
     Active Substance: BACILLUS CALMETTE-GUERIN SUBSTRAIN TICE LIVE ANTIGEN
     Indication: BLADDER CANCER
     Dosage: ONE VIAL, 1 X 1 WEEK X 6 WEEKS, THEN 1 X1 MONTH X 4
     Route: 043
     Dates: start: 20180731, end: 20181127

REACTIONS (2)
  - No adverse event [Unknown]
  - Product dose omission [Unknown]
